FAERS Safety Report 4727622-2 (Version None)
Quarter: 2005Q3

REPORT INFORMATION
  Report Type: 
  Country: None (occurrence: None)
  Receive Date: 20050728
  Receipt Date: 20050713
  Transmission Date: 20060218
  Serious: Yes (Hospitalization)
  Sender: FDA-Public Use
  Company Number: CN-SANOFI-SYNTHELABO-A01200504782

PATIENT
  Age: 69 Year
  Sex: Female
  Weight: 55 kg

DRUGS (4)
  1. PLAVIX [Suspect]
     Indication: CEREBROVASCULAR ACCIDENT
     Route: 048
     Dates: start: 20050608, end: 20050628
  2. ASPIRIN [Suspect]
     Indication: DRUG USE FOR UNKNOWN INDICATION
     Route: 065
  3. SK [Concomitant]
     Indication: THROMBOSIS
     Route: 013
     Dates: start: 20050613, end: 20050613
  4. HEPARIN [Concomitant]
     Indication: DRUG USE FOR UNKNOWN INDICATION
     Route: 013
     Dates: start: 20050613, end: 20050613

REACTIONS (3)
  - COMA [None]
  - CRANIAL NERVE DISORDER [None]
  - HAEMORRHAGE INTRACRANIAL [None]
